FAERS Safety Report 4406076-X (Version None)
Quarter: 2004Q3

REPORT INFORMATION
  Report Type: 
  Country: None (occurrence: None)
  Receive Date: 20040723
  Receipt Date: 20040412
  Transmission Date: 20050211
  Serious: No
  Sender: FDA-Public Use
  Company Number: US-GLAXOSMITHKLINE-A0506814A

PATIENT
  Age: 48 Year
  Sex: Male

DRUGS (4)
  1. AVANDIA [Suspect]
     Dosage: 4MG PER DAY
     Route: 048
     Dates: start: 20040408
  2. LISINOPRIL [Concomitant]
  3. DOXYCYCLINE [Concomitant]
  4. MULTI-VITAMIN [Concomitant]

REACTIONS (1)
  - NASOPHARYNGITIS [None]
